FAERS Safety Report 5348478-3 (Version None)
Quarter: 2007Q2

REPORT INFORMATION
  Report Type: 
  Country: None (occurrence: None)
  Receive Date: 20070606
  Receipt Date: 20070525
  Transmission Date: 20071010
  Serious: Yes (Hospitalization)
  Sender: FDA-Public Use
  Company Number: FR-PFIZER INC-2007042320

PATIENT
  Sex: Female
  Weight: 2.5 kg

DRUGS (11)
  1. PROSTIN VR SOLUTION, STERILE [Suspect]
  2. HYDROCORTISONE [Suspect]
  3. AMOXICILLIN [Suspect]
  4. DOBUTAMINE HCL [Suspect]
  5. EPOPROSTENOL SODIUM [Suspect]
     Route: 042
  6. AMOXICILLIN [Concomitant]
  7. CEFOTAXIME [Concomitant]
  8. AMIKACIN [Concomitant]
  9. VANCOMYCIN HCL [Concomitant]
  10. NOREPINEPHRINE HYDROCHLORIDE [Concomitant]
  11. SUFENTANIL CITRATE [Concomitant]

REACTIONS (1)
  - HYPOKALAEMIA [None]
